FAERS Safety Report 5740980-5 (Version None)
Quarter: 2008Q2

REPORT INFORMATION
  Report Type: 
  Country: None (occurrence: None)
  Receive Date: 20080516
  Receipt Date: 20080507
  Transmission Date: 20081010
  Serious: Yes (Other)
  Sender: FDA-Public Use
  Company Number: US-PFIZER INC-2008034228

PATIENT
  Age: 32 Year
  Sex: Female

DRUGS (2)
  1. CHANTIX [Suspect]
     Indication: ALCOHOLISM
     Route: 048
  2. LAMICTAL [Interacting]
     Indication: BIPOLAR DISORDER
     Dosage: DAILY DOSE:50MG
     Route: 048
     Dates: start: 20080220, end: 20080307

REACTIONS (5)
  - DRUG INTERACTION [None]
  - LYMPHADENOPATHY [None]
  - MYALGIA [None]
  - PAIN [None]
  - RASH [None]
